FAERS Safety Report 7997497-7 (Version None)
Quarter: 2011Q4

REPORT INFORMATION
  Report Type: 
  Country: None (occurrence: None)
  Receive Date: 20111221
  Receipt Date: 20111221
  Transmission Date: 20120403
  Serious: Yes (Hospitalization)
  Sender: FDA-Public Use
  Company Number: None

PATIENT
  Age: 27 Year
  Sex: Female
  Weight: 111.13 kg

DRUGS (1)
  1. IMPLANON [Suspect]
     Indication: CONTRACEPTION
     Dosage: 1 DEVICE
     Route: 059
     Dates: start: 20110325, end: 20111220

REACTIONS (11)
  - AGITATION [None]
  - SELF ESTEEM DECREASED [None]
  - SUICIDAL IDEATION [None]
  - ANGER [None]
  - PARANOIA [None]
  - PANIC REACTION [None]
  - STRESS [None]
  - EMOTIONAL DISORDER [None]
  - MOOD SWINGS [None]
  - MENTAL DISORDER [None]
  - CONDITION AGGRAVATED [None]
